FAERS Safety Report 7931654 (Version 2)
Quarter: 2013Q4

REPORT INFORMATION
  Report Type: Report from Study
  Country: US (occurrence: US)
  Receive Date: 20110505
  Receipt Date: 20131028
  Transmission Date: 20140711
  Serious: Yes (Hospitalization)
  Sender: FDA-Public Use
  Company Number: US-ACTELION-A-US2011-48038

PATIENT
  Age: 49 Year
  Sex: Female

DRUGS (1)
  1. TRACLEER [Suspect]
     Indication: PULMONARY ARTERIAL HYPERTENSION
     Dosage: UNK
     Route: 048
     Dates: start: 20090104

REACTIONS (3)
  - Vascular graft [Unknown]
  - Thrombosis [Not Recovered/Not Resolved]
  - Thrombectomy [Not Recovered/Not Resolved]
